FAERS Safety Report 7960443-6 (Version None)
Quarter: 2011Q4

REPORT INFORMATION
  Report Type: 
  Country: None (occurrence: None)
  Receive Date: 20111206
  Receipt Date: 20111129
  Transmission Date: 20120403
  Serious: Yes (Hospitalization)
  Sender: FDA-Public Use
  Company Number: US-B.I. PHARMACEUTICALS,INC./RIDGEFIELD-2011-BP-22880BP

PATIENT
  Sex: Male
  Weight: 72.57 kg

DRUGS (5)
  1. AGGRENOX [Suspect]
     Indication: CEREBROVASCULAR ACCIDENT PROPHYLAXIS
     Route: 048
     Dates: start: 20100201, end: 20110910
  2. DILANTIN [Concomitant]
  3. LOVENOX [Concomitant]
  4. KEPPRA [Concomitant]
  5. PREDNISONE TAB [Concomitant]

REACTIONS (1)
  - HAEMORRHAGE INTRACRANIAL [None]
